FAERS Safety Report 25825439 (Version 1)
Quarter: 2025Q3

REPORT INFORMATION
  Report Type: Spontaneous
  Country: US (occurrence: None)
  Receive Date: 20250919
  Receipt Date: 20250919
  Transmission Date: 20251021
  Serious: Yes (Hospitalization)
  Sender: FDA-CTU
  Company Number: None

PATIENT
  Age: 5 Year
  Sex: Female
  Weight: 20.8 kg

DRUGS (1)
  1. NEFFY [Suspect]
     Active Substance: EPINEPHRINE

REACTIONS (11)
  - Vomiting [None]
  - Mouth swelling [None]
  - Oral discomfort [None]
  - Panic reaction [None]
  - Erythema [None]
  - Mouth breathing [None]
  - Sneezing [None]
  - Urticaria [None]
  - Feeling abnormal [None]
  - Respiration abnormal [None]
  - Pallor [None]

NARRATIVE: CASE EVENT DATE: 20250830
